FAERS Safety Report 4484278-4 (Version None)
Quarter: 2004Q4

REPORT INFORMATION
  Report Type: 
  Country: None (occurrence: None)
  Receive Date: 20041021
  Receipt Date: 20041006
  Transmission Date: 20050328
  Serious: Yes (Death)
  Sender: FDA-Public Use
  Company Number: 2004AL000628

PATIENT
  Age: 36 Year
  Sex: Male

DRUGS (2)
  1. CHILDREN'S APAP ELIXIR (ACETAMINOPHEN) (ALPHARMA) [Suspect]
     Dosage: PO
     Route: 048
  2. INFANT'S APAP DROPS (ACETAMINOPHEN) (ALPHARMA) [Suspect]
     Dosage: PO
     Route: 048

REACTIONS (11)
  - ASPIRATION [None]
  - BRADYCARDIA [None]
  - COAGULOPATHY [None]
  - COMA [None]
  - COMPLETED SUICIDE [None]
  - HAEMODIALYSIS [None]
  - HAEMODYNAMIC INSTABILITY [None]
  - HEPATIC FAILURE [None]
  - HYPOTENSION [None]
  - ILEUS [None]
  - OVERDOSE [None]
